FAERS Safety Report 19026872 (Version 1)
Quarter: 2021Q1

REPORT INFORMATION
  Report Type: Spontaneous
  Country: JP (occurrence: JP)
  Receive Date: 20210318
  Receipt Date: 20210318
  Transmission Date: 20210420
  Serious: Yes (Death)
  Sender: FDA-Public Use
  Company Number: NVSC2021JP062040

PATIENT

DRUGS (4)
  1. CARFILZOMIB [Suspect]
     Active Substance: CARFILZOMIB
     Indication: PLASMA CELL MYELOMA
     Dosage: ON DAYS 1, 8, AND 15 OF ALL CYCLES (20 MG/M2 [CYCLE 1, DAY 1]
     Route: 042
  2. DEXAMETHASONE. [Suspect]
     Active Substance: DEXAMETHASONE
     Indication: PLASMA CELL MYELOMA
     Dosage: 40 MG, 30 MIN ON DAYS 1, 8, AND 15
     Route: 065
  3. DEXAMETHASONE. [Suspect]
     Active Substance: DEXAMETHASONE
     Dosage: DAY 22 TAKEN ORALLY, ONLY ADMINISTERED DURING CYCLES 1 TO 9
     Route: 048
  4. CARFILZOMIB [Suspect]
     Active Substance: CARFILZOMIB
     Dosage: THEREAFTER: KD 20/70 MG/M2
     Route: 065

REACTIONS (2)
  - Acute respiratory distress syndrome [Fatal]
  - Product use in unapproved indication [Unknown]
